FAERS Safety Report 14670368 (Version 2)
Quarter: 2018Q2

REPORT INFORMATION
  Report Type: Spontaneous
  Country: US (occurrence: US)
  Receive Date: 20180322
  Receipt Date: 20180409
  Transmission Date: 20180711
  Serious: Yes (Hospitalization)
  Sender: FDA-Public Use
  Company Number: US-TEVA-2018-US-873428

PATIENT
  Age: 39 Year
  Sex: Female

DRUGS (2)
  1. SULFASALAZINE. [Suspect]
     Active Substance: SULFASALAZINE
     Indication: PSORIATIC ARTHROPATHY
     Dosage: THERAPY STARTED 1 MONTH PRIOR TO THE PRESENTATION AND DISCONTINUED ON PRESENTATION.
     Route: 065
  2. APREMILAST [Concomitant]
     Active Substance: APREMILAST
     Indication: PSORIATIC ARTHROPATHY
     Dosage: THERAPY STATED 10 MONTHS PRIOR TO THE PRESENTATION AND DISCONTINUED ON PRESENTATION.
     Route: 065

REACTIONS (1)
  - Drug reaction with eosinophilia and systemic symptoms [Recovered/Resolved]
